FAERS Safety Report 14837385 (Version 1)
Quarter: 2018Q2

REPORT INFORMATION
  Report Type: Spontaneous
  Country: GB (occurrence: GB)
  Receive Date: 20180502
  Receipt Date: 20180502
  Transmission Date: 20180711
  Serious: Yes (Disabling, Other)
  Sender: FDA-Public Use
  Company Number: GB-AMGEN-GBRSP2018057169

PATIENT

DRUGS (1)
  1. XGEVA [Suspect]
     Active Substance: DENOSUMAB
     Indication: PRODUCT USED FOR UNKNOWN INDICATION
     Dosage: 120 UNK, UNK
     Route: 065

REACTIONS (10)
  - Thrombosis [Unknown]
  - Condition aggravated [Unknown]
  - Bone pain [Unknown]
  - Malaise [Not Recovered/Not Resolved]
  - Hyperhidrosis [Unknown]
  - Muscle disorder [Unknown]
  - Toxicity to various agents [Unknown]
  - Tooth loss [Unknown]
  - Headache [Unknown]
  - Alopecia [Unknown]
